FAERS Safety Report 9464347 (Version 2)
Quarter: 2013Q3

REPORT INFORMATION
  Report Type: Spontaneous
  Country: US (occurrence: US)
  Receive Date: 20130819
  Receipt Date: 20130919
  Transmission Date: 20140515
  Serious: Yes (Other)
  Sender: FDA-Public Use
  Company Number: US-TEVA-426797USA

PATIENT
  Age: 36 Year
  Sex: Female
  Weight: 119.4 kg

DRUGS (1)
  1. PARAGARD 380A [Suspect]
     Indication: CONTRACEPTION
     Route: 015
     Dates: start: 2008, end: 20130808

REACTIONS (8)
  - Medical device complication [Not Recovered/Not Resolved]
  - Device breakage [Unknown]
  - Dysmenorrhoea [Unknown]
  - Metrorrhagia [Unknown]
  - Menstruation irregular [Unknown]
  - Vulvovaginal mycotic infection [Unknown]
  - Vulvovaginal discomfort [Unknown]
  - Vaginal discharge [Unknown]
